FAERS Safety Report 15057521 (Version 1)
Quarter: 2018Q2

REPORT INFORMATION
  Report Type: Spontaneous
  Country: DE (occurrence: DE)
  Receive Date: 20180625
  Receipt Date: 20180625
  Transmission Date: 20180711
  Serious: Yes (Other)
  Sender: FDA-Public Use
  Company Number: DE-ACCORD-068692

PATIENT
  Sex: Female
  Weight: 52 kg

DRUGS (13)
  1. TRIMIPRAMIN-NEURAXPHARM [Suspect]
     Active Substance: TRIMIPRAMINE MALEATE
     Indication: DEPRESSION
     Dosage: REDUCED TO 25 MG
     Dates: start: 2005, end: 201602
  2. SIRDALUD [Concomitant]
     Active Substance: TIZANIDINE
     Dosage: STRENGTH: 2 MG
  3. RAMIPRIL. [Suspect]
     Active Substance: RAMIPRIL
     Indication: PRODUCT USED FOR UNKNOWN INDICATION
     Dosage: STRENGTH: 5 MG
     Route: 048
  4. NOVALGIN [Concomitant]
  5. FLUOXETINE [Suspect]
     Active Substance: FLUOXETINE HYDROCHLORIDE
     Indication: DEPRESSION
     Dosage: REDUCED TO 20 MG
     Dates: start: 2005, end: 201602
  6. LYRICA [Concomitant]
     Active Substance: PREGABALIN
     Dosage: STRENGTH: 50 MG
  7. MOVICOL [Concomitant]
     Active Substance: POLYETHYLENE GLYCOL 3350\POTASSIUM CHLORIDE\SODIUM BICARBONATE\SODIUM CHLORIDE
  8. INSULIN TRESIBA [Concomitant]
  9. IBUPROFEN. [Concomitant]
     Active Substance: IBUPROFEN
  10. BISOPROLOL [Concomitant]
     Active Substance: BISOPROLOL
     Dosage: STRENGTH: 5 MG
  11. L-THYROX [Concomitant]
     Active Substance: LEVOTHYROXINE SODIUM
     Dosage: STRENGTH: 125 UG
  12. MORPHINE [Suspect]
     Active Substance: MORPHINE
     Dosage: STRENGTH: 10 MG
     Route: 048
  13. HUMALOG [Concomitant]
     Active Substance: INSULIN LISPRO

REACTIONS (7)
  - Balance disorder [Recovering/Resolving]
  - Bone erosion [Unknown]
  - Body height decreased [Not Recovered/Not Resolved]
  - Muscle atrophy [Unknown]
  - Arthralgia [Not Recovered/Not Resolved]
  - Fractured sacrum [Not Recovered/Not Resolved]
  - Hyponatraemia [Recovered/Resolved]

NARRATIVE: CASE EVENT DATE: 2005
